FAERS Safety Report 5683964-8 (Version None)
Quarter: 2008Q1

REPORT INFORMATION
  Report Type: 
  Country: None (occurrence: None)
  Receive Date: 20080328
  Receipt Date: 20080319
  Transmission Date: 20080703
  Serious: Yes (Hospitalization)
  Sender: FDA-Public Use
  Company Number: PHNU2008DE01087

PATIENT
  Age: 79 Year
  Sex: Male

DRUGS (5)
  1. SEROQUEL [Concomitant]
     Indication: DEPRESSION
     Dosage: 25 MG/DAY
     Route: 048
     Dates: start: 20070101
  2. EXELON [Suspect]
     Indication: DEMENTIA
     Dosage: 9.5 MG/24HR PATCH
     Route: 062
     Dates: start: 20071203, end: 20080109
  3. COMTESS [Suspect]
     Dosage: 4 DOSAGES DAILY
     Route: 048
     Dates: start: 20070101
  4. LEVOPAR 125 [Suspect]
     Indication: PARKINSON'S DISEASE
     Dosage: 4 DOSAGES DAILY
     Route: 048
     Dates: start: 20070101
  5. CIPRALEX [Concomitant]
     Indication: DEPRESSION
     Dosage: 10 MG/DAY
     Route: 048
     Dates: start: 20070101

REACTIONS (3)
  - AGGRESSION [None]
  - CONFUSIONAL STATE [None]
  - PSYCHOTIC DISORDER [None]
